FAERS Safety Report 21285923 (Version 1)
Quarter: 2022Q3

REPORT INFORMATION
  Report Type: Spontaneous
  Country: ES (occurrence: ES)
  Receive Date: 20220902
  Receipt Date: 20220902
  Transmission Date: 20221026
  Serious: Yes (Hospitalization)
  Sender: FDA-Public Use
  Company Number: None

PATIENT
  Age: 49 Year
  Sex: Male

DRUGS (3)
  1. RANOLAZINE [Interacting]
     Active Substance: RANOLAZINE
     Indication: Chest pain
     Dosage: (8317A), 375/ 12 H
     Dates: start: 20210929, end: 20211007
  2. COBICISTAT\DARUNAVIR\EMTRICITABINE\TENOFOVIR ALAFENAMIDE [Interacting]
     Active Substance: COBICISTAT\DARUNAVIR\EMTRICITABINE\TENOFOVIR ALAFENAMIDE
     Indication: HIV test positive
     Dosage: (8074A), DARUNAVIR/EMTRICITABINE/TENOFOVIR /COBICISTAT TABLETS 800/ 200 / 10 MG /?150 MG
     Dates: start: 20190724
  3. ATORVASTATIN [Concomitant]
     Active Substance: ATORVASTATIN
     Dosage: 40 MG DAILY
     Dates: start: 20210831

REACTIONS (4)
  - General physical health deterioration [Recovering/Resolving]
  - Asthenia [Not Recovered/Not Resolved]
  - Gait disturbance [Recovering/Resolving]
  - Drug interaction [Unknown]

NARRATIVE: CASE EVENT DATE: 20211001
